FAERS Safety Report 6980006-9 (Version None)
Quarter: 2010Q3

REPORT INFORMATION
  Report Type: 
  Country: None (occurrence: None)
  Receive Date: 20100914
  Receipt Date: 20100903
  Transmission Date: 20110219
  Serious: Yes (Other)
  Sender: FDA-Public Use
  Company Number: AT-PFIZER INC-2010094307

PATIENT
  Age: 83 Year
  Sex: Female

DRUGS (9)
  1. ZELDOX [Suspect]
     Indication: HYPERKINESIA
     Dosage: 40 MG, 1X/DAY
     Route: 048
     Dates: start: 20091210, end: 20100721
  2. TRAZODONE HCL [Concomitant]
     Dosage: UNK
  3. MEMANTINE HYDROCHLORIDE [Concomitant]
     Dosage: UNK
  4. ASPIRIN [Concomitant]
     Dosage: UNK
  5. PANTOPRAZOLE SODIUM [Concomitant]
     Dosage: UNK
  6. ENALAPRIL MALEATE [Concomitant]
     Dosage: UNK
  7. GLADEM [Concomitant]
     Dosage: UNK
  8. NOVONORM [Concomitant]
     Dosage: UNK
  9. ALENDRONATE SODIUM [Concomitant]
     Dosage: UNK

REACTIONS (1)
  - PARKINSONISM [None]
